FAERS Safety Report 22082271 (Version 1)
Quarter: 2023Q1

REPORT INFORMATION
  Report Type: Spontaneous
  Country: BR (occurrence: BR)
  Receive Date: 20230310
  Receipt Date: 20230310
  Transmission Date: 20230418
  Serious: Yes (Hospitalization, Other)
  Sender: FDA-Public Use
  Company Number: BR-009507513-2303BRA001903

PATIENT
  Age: 69 Year
  Sex: Female
  Weight: 88 kg

DRUGS (4)
  1. TEMODAL [Suspect]
     Active Substance: TEMOZOLOMIDE
     Indication: Bronchial carcinoma
     Dosage: TEMODAL 5 MG AND TEMODAL 20 MG, TOTAL DAILY DOSE WAS 90 MG
     Route: 048
     Dates: end: 202301
  2. TEMODAL [Suspect]
     Active Substance: TEMOZOLOMIDE
     Indication: Bronchial carcinoma
     Dosage: TEMODAL 5 MG AND TEMODAL 20 MG, TOTAL DAILY DOSE WAS 90 MG
     Route: 048
     Dates: end: 202301
  3. TEMODAL [Suspect]
     Active Substance: TEMOZOLOMIDE
     Dosage: TABLET OF 250 MG + 01 TABLET OF 20 MG, TOTAL DAILY DOSE WAS 270 MG
     Route: 048
     Dates: start: 202303
  4. TEMODAL [Suspect]
     Active Substance: TEMOZOLOMIDE
     Indication: Bronchial carcinoma
     Dosage: 1 TABLET OF 250 MG + 01 TABLET OF 20 MG, TOTAL DAILY DOSE WAS 270 MG
     Route: 048
     Dates: start: 202303

REACTIONS (4)
  - Platelet count increased [Unknown]
  - Brain oedema [Unknown]
  - Arrhythmia [Unknown]
  - Product use in unapproved indication [Unknown]

NARRATIVE: CASE EVENT DATE: 20230103
